FAERS Safety Report 4523581-6 (Version None)
Quarter: 2004Q4

REPORT INFORMATION
  Report Type: 
  Country: None (occurrence: None)
  Receive Date: 20041208
  Receipt Date: 20041202
  Transmission Date: 20050328
  Serious: Yes (Other)
  Sender: FDA-Public Use
  Company Number: OMPQ-PR-0412S-1403

PATIENT
  Age: 68 Year
  Sex: Female
  Weight: 117.2 kg

DRUGS (2)
  1. OMNIPAQUE 140 [Suspect]
     Indication: CORONARY ARTERY DISEASE
     Dosage: 170 ML SINGLE DOSE I.A.
     Route: 013
     Dates: start: 20040422, end: 20040422
  2. INSULIN [Concomitant]

REACTIONS (1)
  - TOXIC EPIDERMAL NECROLYSIS [None]
